FAERS Safety Report 25589129 (Version 1)
Quarter: 2025Q3

REPORT INFORMATION
  Report Type: Report from Study
  Country: US (occurrence: US)
  Receive Date: 20250722
  Receipt Date: 20250722
  Transmission Date: 20251021
  Serious: Yes (Hospitalization, Other)
  Sender: ALEXION PHARMACEUTICALS
  Company Number: US-AstraZeneca-CH-00911088A

PATIENT
  Sex: Female

DRUGS (1)
  1. EPLONTERSEN SODIUM [Suspect]
     Active Substance: EPLONTERSEN SODIUM
     Route: 065

REACTIONS (6)
  - Glaucoma [Unknown]
  - Feeling abnormal [Unknown]
  - Gait disturbance [Unknown]
  - Blood glucose increased [Unknown]
  - Blood pressure fluctuation [Unknown]
  - Cerebrovascular accident [Unknown]
